FAERS Safety Report 6420448-3 (Version None)
Quarter: 2009Q4

REPORT INFORMATION
  Report Type: 
  Country: None (occurrence: None)
  Receive Date: 20091021
  Receipt Date: 20090813
  Transmission Date: 20100525
  Serious: No
  Sender: FDA-Public Use
  Company Number: ALL1-2009-02317

PATIENT
  Age: 43 Year
  Sex: Male
  Weight: 158.7 kg

DRUGS (9)
  1. VYVANSE [Suspect]
     Indication: ATTENTION DEFICIT/HYPERACTIVITY DISORDER
     Dosage: 140 MG, 1X/DAY:QD, ORAL
     Route: 048
     Dates: start: 20090701
  2. PAXIL [Concomitant]
  3. ALLOPURINOL [Concomitant]
  4. SYNTHROID [Concomitant]
  5. CRESTOR [Concomitant]
  6. SINGULAIR [Concomitant]
  7. TRICOR (ADENOSINE) [Concomitant]
  8. ALLEGRA [Concomitant]
  9. LISINOPRIL [Concomitant]

REACTIONS (4)
  - DYSGEUSIA [None]
  - GLOSSODYNIA [None]
  - OVERDOSE [None]
  - SALIVARY HYPERSECRETION [None]
